FAERS Safety Report 6824099-8 (Version None)
Quarter: 2010Q3

REPORT INFORMATION
  Report Type: 
  Country: None (occurrence: None)
  Receive Date: 20100708
  Receipt Date: 20061005
  Transmission Date: 20110219
  Serious: No
  Sender: FDA-Public Use
  Company Number: US-PFIZER INC-2006123998

PATIENT
  Sex: Female

DRUGS (13)
  1. CHANTIX [Suspect]
     Indication: SMOKING CESSATION THERAPY
     Dates: start: 20061005
  2. LIPITOR [Concomitant]
  3. PROTONIX [Concomitant]
  4. GLYBURIDE [Concomitant]
  5. ALBUTEROL [Concomitant]
  6. AMBIEN [Concomitant]
  7. AMITRIPTYLINE [Concomitant]
  8. ACTOS [Concomitant]
  9. LASIX [Concomitant]
  10. LEVOXYL [Concomitant]
  11. METFORMIN HCL [Concomitant]
  12. VICODIN [Concomitant]
     Indication: ARTHRITIS
  13. ALL OTHER THERAPEUTIC PRODUCTS [Concomitant]
     Indication: MIGRAINE

REACTIONS (1)
  - NAUSEA [None]
